FAERS Safety Report 6370843-6 (Version None)
Quarter: 2009Q3

REPORT INFORMATION
  Report Type: 
  Country: None (occurrence: None)
  Receive Date: 20090923
  Receipt Date: 20070601
  Transmission Date: 20100115
  Serious: Yes (Hospitalization)
  Sender: FDA-Public Use
  Company Number: US-ASTRAZENECA-2006UW23681

PATIENT
  Age: 17670 Day
  Sex: Female
  Weight: 68 kg

DRUGS (39)
  1. SEROQUEL [Suspect]
     Indication: SCHIZOPHRENIA
     Dosage: 25MG-200MG
     Route: 048
     Dates: start: 20020110
  2. SEROQUEL [Suspect]
     Indication: DEPRESSION
     Dosage: 25MG-200MG
     Route: 048
     Dates: start: 20020110
  3. SEROQUEL [Suspect]
     Indication: BIPOLAR DISORDER
     Dosage: 25MG-200MG
     Route: 048
     Dates: start: 20020110
  4. SEROQUEL [Suspect]
     Route: 048
  5. SEROQUEL [Suspect]
     Route: 048
  6. SEROQUEL [Suspect]
     Route: 048
  7. HALDOL [Concomitant]
  8. NAVANE [Concomitant]
  9. RISPERDAL [Concomitant]
  10. THORAZINE [Concomitant]
  11. TRILAFON [Concomitant]
  12. ZYPREXA [Concomitant]
  13. DOXEPIN HCL [Concomitant]
     Dosage: 75 MG-300 MG
     Route: 048
  14. OXYCONTIN [Concomitant]
     Dosage: 20 MG-400 MG
     Route: 048
  15. AVANDIA [Concomitant]
     Dosage: 2 MG-6 MG
     Route: 048
  16. LIPITOR [Concomitant]
     Dosage: 10MG-20MG
     Route: 048
  17. CARAFATE [Concomitant]
     Indication: DYSPEPSIA
     Dosage: 1GM-4GM
     Route: 048
  18. RANITIDINE [Concomitant]
     Route: 048
  19. NAPROXEN [Concomitant]
  20. PHENERGAN [Concomitant]
  21. CLONIDINE [Concomitant]
  22. FLEXERIL [Concomitant]
     Route: 048
     Dates: end: 20061221
  23. CELEXA [Concomitant]
     Route: 048
  24. DESYREL [Concomitant]
     Indication: SLEEP DISORDER
     Dosage: 50-MG-150MG
     Route: 048
  25. ZANAFLEX [Concomitant]
     Dosage: 2MG-12MG
     Route: 048
  26. KLONOPIN [Concomitant]
     Indication: ANXIETY
     Dosage: 2 MG,2 OR 3 TIMES A DAY
     Route: 048
  27. BISACODYL [Concomitant]
  28. VIOXX [Concomitant]
  29. GLUCOPHAGE [Concomitant]
     Dosage: 500MG-1500MG
     Route: 048
  30. KEFLEX [Concomitant]
  31. ACTOS [Concomitant]
     Route: 048
  32. PAXIL [Concomitant]
  33. COGENTIN [Concomitant]
  34. ATARAX [Concomitant]
     Dosage: TWICE A DAY
  35. ALBUTEROL [Concomitant]
     Dosage: 2 PUFF
  36. LASIX [Concomitant]
     Dosage: 20MG-40MG
     Route: 048
  37. ATIVAN [Concomitant]
  38. ASPIRIN [Concomitant]
  39. LORTAB [Concomitant]
     Indication: PAIN
     Dosage: 7.5/500
     Route: 048

REACTIONS (2)
  - DIABETES MELLITUS [None]
  - TYPE 2 DIABETES MELLITUS [None]
